FAERS Safety Report 22025362 (Version 1)
Quarter: 2023Q1

REPORT INFORMATION
  Report Type: Report from Study
  Country: US (occurrence: US)
  Receive Date: 20230223
  Receipt Date: 20230223
  Transmission Date: 20230417
  Serious: Yes (Hospitalization)
  Sender: FDA-Public Use
  Company Number: US-JNJFOC-20230234415

PATIENT
  Sex: Female

DRUGS (1)
  1. REMICADE [Suspect]
     Active Substance: INFLIXIMAB
     Indication: Colitis ulcerative
     Route: 041

REACTIONS (5)
  - Lupus-like syndrome [Unknown]
  - Sinusitis [Unknown]
  - Colitis ulcerative [Unknown]
  - Incorrect drug administration rate [Unknown]
  - Incorrect drug administration rate [Unknown]
